FAERS Safety Report 18955575 (Version 5)
Quarter: 2022Q2

REPORT INFORMATION
  Report Type: Spontaneous
  Country: CA (occurrence: CA)
  Receive Date: 20210301
  Receipt Date: 20220505
  Transmission Date: 20220720
  Serious: Yes (Other)
  Sender: FDA-Public Use
  Company Number: CA-PFIZER INC-2021200338

PATIENT
  Sex: Female

DRUGS (24)
  1. AMLODIPINE BESYLATE [Interacting]
     Active Substance: AMLODIPINE BESYLATE
     Dosage: 1 DF, 1X/DAY
     Route: 065
  2. ESTRADIOL [Interacting]
     Active Substance: ESTRADIOL
     Dosage: 1 DF
     Route: 067
  3. PREMARIN [Interacting]
     Active Substance: ESTROGENS, CONJUGATED
     Dosage: 0.5 G
     Route: 061
  4. ACETAMINOPHEN\CAFFEINE [Interacting]
     Active Substance: ACETAMINOPHEN\CAFFEINE
     Indication: Pyrexia
     Dosage: 2 DF
     Route: 065
  5. ACETAMINOPHEN\CAFFEINE [Interacting]
     Active Substance: ACETAMINOPHEN\CAFFEINE
     Indication: Pain
  6. ALUMINUM HYDROXIDE [Interacting]
     Active Substance: ALUMINUM HYDROXIDE
     Indication: Abdominal discomfort
     Dosage: 30 ML
     Route: 048
  7. ARIPIPRAZOLE [Interacting]
     Active Substance: ARIPIPRAZOLE
     Dosage: UNK
     Route: 065
  8. CHOLECALCIFEROL [Interacting]
     Active Substance: CHOLECALCIFEROL
     Dosage: UNK
     Route: 065
  9. CLOTRIMAZOLE [Interacting]
     Active Substance: CLOTRIMAZOLE
     Indication: Rash
     Dosage: UNK, 2X/DAY
     Route: 065
  10. CLOZAPINE [Interacting]
     Active Substance: CLOZAPINE
     Indication: Schizophrenia
     Dosage: 1 DF, 1X/DAY
     Route: 065
  11. CLOZAPINE [Interacting]
     Active Substance: CLOZAPINE
     Dosage: 3 DF, 1X/DAY
     Route: 065
  12. FLUVIRAL [Interacting]
     Active Substance: INFLUENZA VIRUS VACCINE
     Dosage: UNK
     Route: 065
  13. LEVOTHYROXINE [Interacting]
     Active Substance: LEVOTHYROXINE
     Dosage: 1 DF
     Route: 065
  14. OLANZAPINE [Interacting]
     Active Substance: OLANZAPINE
     Indication: Mood altered
     Dosage: 1 DF, 1X/DAY
     Route: 065
  15. OLANZAPINE [Interacting]
     Active Substance: OLANZAPINE
     Indication: Electrocardiogram QT prolonged
     Dosage: UNK
     Route: 065
  16. OLANZAPINE [Interacting]
     Active Substance: OLANZAPINE
     Dosage: 1 DF, 2X/DAY
     Route: 065
  17. RANITIDINE [Interacting]
     Active Substance: RANITIDINE
     Dosage: 150 MG, 2X/DAY
     Route: 065
  18. REXULTI [Interacting]
     Active Substance: BREXPIPRAZOLE
     Dosage: UNK
     Route: 065
  19. DEPAKOTE [Interacting]
     Active Substance: DIVALPROEX SODIUM
     Dosage: 1 DF, 2X/DAY
     Route: 065
  20. ZOPICLONE [Interacting]
     Active Substance: ZOPICLONE
     Indication: Insomnia
     Dosage: 1 DF, 1X/DAY
     Route: 065
  21. ALMAGATE [Interacting]
     Active Substance: ALMAGATE
     Indication: Abdominal discomfort
     Dosage: 30 ML
     Route: 048
  22. VITAMIN D3 [Interacting]
     Active Substance: CHOLECALCIFEROL
     Dosage: 1 DF
  23. ACETAMINOPHEN [Interacting]
     Active Substance: ACETAMINOPHEN
     Indication: Pyrexia
     Dosage: 2 DF
  24. ACETAMINOPHEN [Interacting]
     Active Substance: ACETAMINOPHEN
     Indication: Pain

REACTIONS (4)
  - Drug interaction [Unknown]
  - Drug level increased [Unknown]
  - Electrocardiogram QT prolonged [Unknown]
  - Schizoaffective disorder [Unknown]
